FAERS Safety Report 21145188 (Version 1)
Quarter: 2022Q3

REPORT INFORMATION
  Report Type: Spontaneous
  Country: US (occurrence: None)
  Receive Date: 20220729
  Receipt Date: 20220729
  Transmission Date: 20221027
  Serious: No
  Sender: FDA-Public Use
  Company Number: US-Saptalis Pharmaceuticals,LLC-000290

PATIENT
  Sex: Male

DRUGS (1)
  1. CLOBETASOL PROPIONATE [Suspect]
     Active Substance: CLOBETASOL PROPIONATE
     Indication: Psoriasis
     Dosage: 0.05%/ 50ML
     Route: 061

REACTIONS (1)
  - Product residue present [Recovering/Resolving]

NARRATIVE: CASE EVENT DATE: 20220710
